FAERS Safety Report 18642362 (Version 1)
Quarter: 2020Q4

REPORT INFORMATION
  Report Type: Spontaneous
  Country: FR (occurrence: FR)
  Receive Date: 20201221
  Receipt Date: 20201221
  Transmission Date: 20210114
  Serious: Yes (Other)
  Sender: FDA-Public Use
  Company Number: FR-TEVA-2020-FR-1859509

PATIENT
  Age: 63 Year
  Sex: Female

DRUGS (5)
  1. CLARITHROMYCINE [Suspect]
     Active Substance: CLARITHROMYCIN
     Indication: MYCOBACTERIUM ABSCESSUS INFECTION
     Route: 065
     Dates: start: 20190405
  2. ATENOLOL. [Concomitant]
     Active Substance: ATENOLOL
  3. CLOFAZIMINE [Suspect]
     Active Substance: CLOFAZIMINE
     Indication: MYCOBACTERIUM ABSCESSUS INFECTION
     Route: 048
     Dates: start: 20200217
  4. ARIKAYCE (ATU) [Concomitant]
     Active Substance: AMIKACIN
  5. TIGECYCLINE. [Suspect]
     Active Substance: TIGECYCLINE
     Indication: MYCOBACTERIUM ABSCESSUS INFECTION
     Route: 042
     Dates: start: 20200925, end: 20201102

REACTIONS (2)
  - Hepatocellular injury [Recovering/Resolving]
  - Abdominal pain [Recovering/Resolving]

NARRATIVE: CASE EVENT DATE: 202009
